FAERS Safety Report 6510527-4 (Version None)
Quarter: 2009Q4

REPORT INFORMATION
  Report Type: 
  Country: None (occurrence: None)
  Receive Date: 20091222
  Receipt Date: 20091217
  Transmission Date: 20100525
  Serious: Yes (Other)
  Sender: FDA-Public Use
  Company Number: US-BAYER-200942973NA

PATIENT
  Age: 37 Year
  Sex: Female

DRUGS (1)
  1. MIRENA [Suspect]
     Indication: CONTRACEPTION
     Dosage: CONTINUOUS
     Route: 015
     Dates: start: 20070101

REACTIONS (5)
  - ABDOMINAL PAIN [None]
  - HYPOAESTHESIA [None]
  - MUSCLE TWITCHING [None]
  - NEUROLOGICAL SYMPTOM [None]
  - VAGINAL HAEMORRHAGE [None]
